FAERS Safety Report 5619072-1 (Version None)
Quarter: 2008Q1

REPORT INFORMATION
  Report Type: 
  Country: None (occurrence: None)
  Receive Date: 20080207
  Receipt Date: 20080131
  Transmission Date: 20080703
  Serious: Yes (Hospitalization)
  Sender: FDA-Public Use
  Company Number: PHHO2004CN07835

PATIENT
  Age: 73 Year
  Sex: Male
  Weight: 61.4 kg

DRUGS (3)
  1. NATEGLINIDE [Suspect]
     Indication: GLUCOSE TOLERANCE IMPAIRED
     Dosage: LEVEL 2
     Route: 048
  2. NATEGLINIDE [Suspect]
     Dosage: LEVEL 1
     Route: 048
     Dates: start: 20020530
  3. VALSARTAN [Suspect]
     Indication: CARDIOVASCULAR DISORDER
     Dosage: LEVEL 1
     Route: 048
     Dates: start: 20020530

REACTIONS (4)
  - COUGH [None]
  - PNEUMONIA [None]
  - PRODUCTIVE COUGH [None]
  - RENAL FAILURE CHRONIC [None]
